FAERS Safety Report 8489184-6 (Version None)
Quarter: 2012Q3

REPORT INFORMATION
  Report Type: 
  Country: None (occurrence: None)
  Receive Date: 20120705
  Receipt Date: 20120622
  Transmission Date: 20120928
  Serious: No
  Sender: FDA-Public Use
  Company Number: CA-JNJFOC-20120612758

PATIENT
  Sex: Male
  Weight: 90 kg

DRUGS (2)
  1. REMICADE [Suspect]
     Indication: COLITIS ULCERATIVE
     Route: 042
     Dates: start: 20120615
  2. REMICADE [Suspect]
     Dosage: 22 INFUSIONS
     Route: 042

REACTIONS (2)
  - BACK PAIN [None]
  - HERPES ZOSTER [None]
